FAERS Safety Report 4817421-5 (Version None)
Quarter: 2005Q4

REPORT INFORMATION
  Report Type: 
  Country: None (occurrence: None)
  Receive Date: 20051101
  Receipt Date: 20051026
  Transmission Date: 20060501
  Serious: Yes (Other)
  Sender: FDA-Public Use
  Company Number: NL-MERCK-0510NLD00022

PATIENT
  Age: 50 Year
  Sex: Female

DRUGS (4)
  1. FOSAMAX [Suspect]
     Route: 048
     Dates: start: 20030327, end: 20040101
  2. FOLIC ACID [Concomitant]
     Route: 048
     Dates: start: 19970912
  3. ACENOCOUMAROL [Suspect]
     Route: 048
     Dates: start: 20021216
  4. DIAZEPAM [Concomitant]
     Route: 048
     Dates: start: 20010709

REACTIONS (4)
  - COAGULOPATHY [None]
  - EMBOLISM [None]
  - HEADACHE [None]
  - HYPERTENSION [None]
